FAERS Safety Report 9767509 (Version 2)
Quarter: 2014Q1

REPORT INFORMATION
  Report Type: Spontaneous
  Country: US (occurrence: US)
  Receive Date: 20131217
  Receipt Date: 20140106
  Transmission Date: 20141002
  Serious: No
  Sender: FDA-Public Use
  Company Number: US-009507513-1312USA006755

PATIENT
  Sex: Male

DRUGS (2)
  1. LIPTRUZET [Suspect]
     Indication: LIPIDS
     Dosage: TOTAL DAILY DOSE 10/40
     Route: 048
     Dates: start: 20131016, end: 20131204
  2. MELOXICAM [Concomitant]
     Indication: GOUT
     Dosage: TOTAL DAILY DOSE 15 MG
     Route: 048
     Dates: start: 20121221

REACTIONS (4)
  - Gout [Unknown]
  - Neuropathy peripheral [Unknown]
  - Myalgia [Unknown]
  - Pain in extremity [Recovered/Resolved]
